FAERS Safety Report 9928595 (Version 1)
Quarter: 2014Q1

REPORT INFORMATION
  Report Type: Spontaneous
  Country: US (occurrence: None)
  Receive Date: 20140226
  Receipt Date: 20140226
  Transmission Date: 20141002
  Serious: Yes (Other)
  Sender: FDA-Public Use
  Company Number: None

PATIENT
  Sex: Male

DRUGS (1)
  1. CHLORPROMAZINE [Suspect]

REACTIONS (8)
  - Aphagia [None]
  - Gastrointestinal motility disorder [None]
  - Renal failure [None]
  - Asthenia [None]
  - Chromaturia [None]
  - Skin discolouration [None]
  - Glassy eyes [None]
  - Myocardial infarction [None]
